FAERS Safety Report 7331814-6 (Version None)
Quarter: 2011Q1

REPORT INFORMATION
  Report Type: 
  Country: None (occurrence: None)
  Receive Date: 20110304
  Receipt Date: 20110225
  Transmission Date: 20110831
  Serious: Yes (Hospitalization, Disabling, Congenital Anomaly, Other)
  Sender: FDA-Public Use
  Company Number: DE-TEVA-268863GER

PATIENT
  Age: 0 Year
  Sex: Female
  Weight: 1.65 kg

DRUGS (2)
  1. VALPROIC ACID [Suspect]
     Dosage: 3600 [MG/D ]
     Route: 064
  2. CARBAMAZEPINE [Suspect]
     Dosage: 450 [MG/D ]
     Route: 064

REACTIONS (10)
  - NEONATAL RESPIRATORY DISTRESS SYNDROME [None]
  - MENINGOMYELOCELE [None]
  - HYPOGLYCAEMIA NEONATAL [None]
  - DEAFNESS CONGENITAL [None]
  - ARNOLD-CHIARI MALFORMATION [None]
  - PULMONARY VALVE STENOSIS CONGENITAL [None]
  - MICROCEPHALY [None]
  - ANAEMIA NEONATAL [None]
  - PREMATURE BABY [None]
  - NEONATAL HYPOTENSION [None]
